FAERS Safety Report 8506454 (Version 3)
Quarter: 2013Q2

REPORT INFORMATION
  Report Type: Spontaneous
  Country: US (occurrence: None)
  Receive Date: 20120327
  Receipt Date: 20120709
  Transmission Date: 20140414
  Serious: Yes (Hospitalization)
  Sender: FDA-Public Use
  Company Number: PHEH2010US03332

PATIENT
  Age: 40 Year
  Sex: Female
  Weight: 67 kg

DRUGS (12)
  1. GLEEVEC [Suspect]
     Indication: CHRONIC MYELOID LEUKAEMIA
     Dosage: 200 MG, QD, ORAL
     Route: 048
     Dates: start: 200902
  2. XANAX [Concomitant]
  3. VALIUM [Concomitant]
  4. ZOFRAN [Concomitant]
  5. PHENERGAN ^AVENTISPHARMA^ (PROMETHAZINE HYDROCHLORIDE) [Concomitant]
  6. LASIX [Concomitant]
  7. POTASSIUM (POTASSIUM) [Concomitant]
  8. TRAZODONE (TRAZODONE) [Concomitant]
  9. PROTONIX [Concomitant]
  10. EFFEXOR [Concomitant]
  11. HYOSCYAMINE (HYOSCYAMINE) [Concomitant]
  12. ACETAMINOPHEN / BUTALBITAL (BUTALBITAL, PARACETAMOL) [Concomitant]

REACTIONS (7)
  - NAUSEA [None]
  - BLOOD MAGNESIUM DECREASED [None]
  - MYALGIA [None]
  - VOMITING [None]
  - BLOOD POTASSIUM DECREASED [None]
  - VITAMIN B12 DECREASED [None]
  - MUSCLE SPASMS [None]
